FAERS Safety Report 10618687 (Version 1)
Quarter: 2014Q4

REPORT INFORMATION
  Report Type: Report from Study
  Country: BR (occurrence: BR)
  Receive Date: 20141202
  Receipt Date: 20141202
  Transmission Date: 20150529
  Serious: Yes (Other)
  Sender: FDA-Public Use
  Company Number: PHHY2014BR157027

PATIENT
  Sex: Female

DRUGS (2)
  1. TRILEPTAL [Suspect]
     Active Substance: OXCARBAZEPINE
     Dosage: 5 ML, BID (IN THE MORNING AND AT NIGHT)
     Route: 065
  2. TRILEPTAL [Suspect]
     Active Substance: OXCARBAZEPINE
     Indication: ARRHYTHMIA
     Dosage: 5 ML, BID (IN THE MORNING AND AT NIGHT)
     Route: 065

REACTIONS (1)
  - Seizure [Recovering/Resolving]
